FAERS Safety Report 24454021 (Version 2)
Quarter: 2024Q4

REPORT INFORMATION
  Report Type: Report from Study
  Country: US (occurrence: US)
  Receive Date: 20241017
  Receipt Date: 20241018
  Transmission Date: 20250114
  Serious: No
  Sender: ROCHE
  Company Number: US-ROCHE-3440774

PATIENT
  Age: 63 Year
  Sex: Female
  Weight: 104.78 kg

DRUGS (13)
  1. RITUXAN [Suspect]
     Active Substance: RITUXIMAB
     Indication: Rheumatoid arthritis
     Dosage: TWICE A YEAR
     Route: 042
     Dates: end: 202206
  2. QUININE [Suspect]
     Active Substance: QUININE
     Indication: Diabetes mellitus
     Route: 065
     Dates: start: 2018, end: 2018
  3. HUMALOG [Concomitant]
     Active Substance: INSULIN LISPRO
  4. LANTUS [Concomitant]
     Active Substance: INSULIN GLARGINE
  5. TRULICITY [Concomitant]
     Active Substance: DULAGLUTIDE
  6. METFORMIN [Concomitant]
     Active Substance: METFORMIN HYDROCHLORIDE
  7. LISINOPRIL [Concomitant]
     Active Substance: LISINOPRIL
  8. GABAPENTIN [Concomitant]
     Active Substance: GABAPENTIN
  9. ATORVASTATIN [Concomitant]
     Active Substance: ATORVASTATIN
  10. ROSUVASTATIN [Concomitant]
     Active Substance: ROSUVASTATIN
  11. XIGDUO XR [Concomitant]
     Active Substance: DAPAGLIFLOZIN PROPANEDIOL\METFORMIN HYDROCHLORIDE
  12. TRAMADOL [Concomitant]
     Active Substance: TRAMADOL
  13. ACETAMINOPHEN\HYDROCODONE [Concomitant]
     Active Substance: ACETAMINOPHEN\HYDROCODONE

REACTIONS (16)
  - Type 2 diabetes mellitus [Not Recovered/Not Resolved]
  - Vertigo [Recovered/Resolved]
  - Myalgia [Not Recovered/Not Resolved]
  - Muscle spasms [Unknown]
  - Drug hypersensitivity [Recovered/Resolved]
  - Blood cholesterol increased [Not Recovered/Not Resolved]
  - Rheumatoid arthritis [Recovered/Resolved]
  - Swelling [Not Recovered/Not Resolved]
  - Pain [Not Recovered/Not Resolved]
  - Insomnia [Not Recovered/Not Resolved]
  - Arthralgia [Not Recovered/Not Resolved]
  - Discomfort [Unknown]
  - Cardiac murmur [Not Recovered/Not Resolved]
  - Gait disturbance [Not Recovered/Not Resolved]
  - Movement disorder [Unknown]
  - Weight bearing difficulty [Unknown]

NARRATIVE: CASE EVENT DATE: 20180101
